FAERS Safety Report 7753943-5 (Version None)
Quarter: 2011Q3

REPORT INFORMATION
  Report Type: 
  Country: None (occurrence: None)
  Receive Date: 20110915
  Receipt Date: 20110907
  Transmission Date: 20111222
  Serious: Yes (Other)
  Sender: FDA-Public Use
  Company Number: CA-ASTRAZENECA-2011SE53908

PATIENT
  Age: 64 Year
  Sex: Female

DRUGS (3)
  1. ESCITALOPRAM [Concomitant]
  2. CRESTOR [Suspect]
     Indication: HYPERCHOLESTEROLAEMIA
     Route: 048
     Dates: start: 20090101, end: 20110501
  3. LETROZOLE [Concomitant]

REACTIONS (1)
  - BREAST CANCER RECURRENT [None]
